FAERS Safety Report 16826693 (Version 1)
Quarter: 2019Q3

REPORT INFORMATION
  Report Type: Spontaneous
  Country: US (occurrence: US)
  Receive Date: 20190919
  Receipt Date: 20190919
  Transmission Date: 20191005
  Serious: No
  Sender: FDA-Public Use
  Company Number: US-AMGEN-USASP2019152934

PATIENT
  Age: 63 Year
  Sex: Male

DRUGS (4)
  1. EPOGEN [Suspect]
     Active Substance: ERYTHROPOIETIN
     Indication: BLOOD LOSS ANAEMIA
     Dosage: 5000 UNIT
     Route: 065
     Dates: start: 20190906, end: 20190906
  2. EPOGEN [Suspect]
     Active Substance: ERYTHROPOIETIN
     Dosage: 10000 UNIT
     Route: 065
     Dates: start: 20190910, end: 20190910
  3. EPOGEN [Suspect]
     Active Substance: ERYTHROPOIETIN
     Dosage: 10000 UNIT
     Route: 065
     Dates: start: 20190908, end: 20190908
  4. EPOGEN [Suspect]
     Active Substance: ERYTHROPOIETIN
     Dosage: 10000 UNIT
     Route: 065
     Dates: start: 20190912

REACTIONS (3)
  - Fatigue [Unknown]
  - Asthenia [Unknown]
  - Pyrexia [Unknown]

NARRATIVE: CASE EVENT DATE: 201909
